FAERS Safety Report 22778423 (Version 4)
Quarter: 2023Q4

REPORT INFORMATION
  Report Type: Spontaneous
  Country: US (occurrence: US)
  Receive Date: 20230802
  Receipt Date: 20231222
  Transmission Date: 20240110
  Serious: Yes (Other)
  Sender: FDA-Public Use
  Company Number: US-THERATECHNOLOGIES INC.-2023-THE-TES-000309

PATIENT

DRUGS (28)
  1. EGRIFTA SV [Suspect]
     Active Substance: TESAMORELIN ACETATE
     Indication: Lipodystrophy acquired
     Dosage: 1.4 MG, QD
     Route: 058
     Dates: start: 20230323
  2. INSULIN NOS [Concomitant]
     Active Substance: INSULIN NOS
     Indication: Diabetes mellitus
     Route: 065
  3. PROVENTIL HFA [Concomitant]
     Active Substance: ALBUTEROL SULFATE
     Indication: Dyspnoea
     Dosage: 2 PUFFS, 90 MCG, EVERY 6 HOURS
     Route: 048
     Dates: start: 20220418
  4. LIPITOR [Concomitant]
     Active Substance: ATORVASTATIN CALCIUM
     Indication: Product used for unknown indication
     Dosage: 1 TABLET, QD
     Route: 048
     Dates: start: 20230620
  5. ASTELIN [Concomitant]
     Active Substance: AZELASTINE HYDROCHLORIDE
     Indication: Product used for unknown indication
     Dosage: 137 ?G, BID, 2 SPRAY INTO EACH NOSTRIL
     Route: 045
     Dates: start: 20221004
  6. BIKTARVY [Concomitant]
     Active Substance: BICTEGRAVIR SODIUM\EMTRICITABINE\TENOFOVIR ALAFENAMIDE FUMARATE
     Indication: Product used for unknown indication
     Dosage: 1 DF, QD, 50-200-25 MG
     Route: 048
     Dates: start: 20230621
  7. PERIDEX [CHLORHEXIDINE GLUCONATE] [Concomitant]
     Indication: Product used for unknown indication
     Dosage: 15 ML, BID, RINSE AROUND IN MOUTH FOR 30 SECONDS
     Route: 048
     Dates: start: 20191008
  8. CLOBEX [Concomitant]
     Active Substance: CLOBETASOL PROPIONATE
     Indication: Product used for unknown indication
     Dosage: UNK
     Route: 061
     Dates: start: 20231005
  9. FLEXERIL [Concomitant]
     Active Substance: CYCLOBENZAPRINE HYDROCHLORIDE
     Indication: Muscle spasms
     Dosage: 1 TABLET AS NEEDED
     Route: 048
     Dates: start: 20231005
  10. FLEXERIL [Concomitant]
     Active Substance: CYCLOBENZAPRINE HYDROCHLORIDE
     Dosage: 2.5 MG, AS NEEDED AT NIGHT
     Route: 048
  11. DEXEDRINE [Concomitant]
     Active Substance: DEXTROAMPHETAMINE SULFATE
     Indication: Product used for unknown indication
     Dosage: 1 TABLET, QD, IN MORNING
     Route: 048
  12. FAMVIR [Concomitant]
     Active Substance: FAMCICLOVIR
     Indication: Product used for unknown indication
     Dosage: 1 TABLET, BID
     Route: 048
     Dates: start: 20230918
  13. PROSCAR [Concomitant]
     Active Substance: FINASTERIDE
     Indication: Product used for unknown indication
     Dosage: 1 TABLET, QD
     Route: 048
     Dates: start: 20231113
  14. GLUCOTROL [Concomitant]
     Active Substance: GLIPIZIDE
     Indication: Diabetes mellitus
     Dosage: 1 TABLET, BID, BEFORE A MEALS
     Route: 048
     Dates: start: 20220901
  15. LANTUS [Concomitant]
     Active Substance: INSULIN GLARGINE
     Indication: Diabetes mellitus
     Dosage: 100 UNIT/ML, 10 UNITS, QD AT BEDTIME
     Route: 058
     Dates: start: 20230323
  16. COZAAR [Concomitant]
     Active Substance: LOSARTAN POTASSIUM
     Indication: Product used for unknown indication
     Dosage: UNK
     Route: 048
     Dates: start: 20231005
  17. SINGULAIR [Concomitant]
     Active Substance: MONTELUKAST SODIUM
     Indication: Product used for unknown indication
     Dosage: 1 TABLET, QD
     Route: 048
     Dates: start: 20220418
  18. BACTROBAN [Concomitant]
     Active Substance: MUPIROCIN CALCIUM
     Indication: Product used for unknown indication
     Dosage: UNK, QD
     Route: 061
     Dates: start: 20201014
  19. LIDOCAINE;NIFEDIPINE [Concomitant]
     Indication: Product used for unknown indication
     Dosage: 0.3 TO 1.5%, 2 TO 3 TIMES PER DAY
     Route: 061
     Dates: start: 20230908
  20. ZOFRAN [Concomitant]
     Active Substance: ONDANSETRON HYDROCHLORIDE
     Indication: Nausea
     Dosage: 1 TABLET, EVERY 8 HOURS AS NEEDED
     Route: 048
     Dates: start: 20221004
  21. PROTONIX [Concomitant]
     Active Substance: PANTOPRAZOLE SODIUM
     Indication: Product used for unknown indication
     Dosage: UNK
     Route: 048
     Dates: start: 20221130
  22. ACTOS [Concomitant]
     Active Substance: PIOGLITAZONE HYDROCHLORIDE
     Indication: Product used for unknown indication
     Dosage: UNK
     Route: 048
     Dates: start: 20231005
  23. SELENIUM SULFIDE [Concomitant]
     Active Substance: SELENIUM SULFIDE
     Indication: Product used for unknown indication
     Dosage: UNK
     Route: 061
     Dates: start: 20231005
  24. SYMBICORT [Concomitant]
     Active Substance: BUDESONIDE\FORMOTEROL FUMARATE DIHYDRATE
     Indication: Product used for unknown indication
     Dosage: 2 PUFFS, BID, 160-4.5 MCG
     Route: 048
     Dates: start: 20230424
  25. FLOMAX [Concomitant]
     Active Substance: TAMSULOSIN HYDROCHLORIDE
     Indication: Product used for unknown indication
     Dosage: 2 TABLET, QD
     Route: 048
     Dates: start: 20231113
  26. TESTOSTERONE [Concomitant]
     Active Substance: TESTOSTERONE
     Indication: Product used for unknown indication
     Dosage: 1 ML, EVERY 14 DAYS
     Route: 030
     Dates: start: 20230818
  27. KENALOG [Concomitant]
     Active Substance: TRIAMCINOLONE ACETONIDE
     Indication: Product used for unknown indication
     Dosage: UNK
     Route: 061
     Dates: start: 20231005
  28. VICTOZA [Concomitant]
     Active Substance: LIRAGLUTIDE
     Indication: Diabetes mellitus
     Dosage: QD, 0.6MG/0.1ML (18 MG/3 ML), PEN INJECTOR
     Route: 058
     Dates: start: 20220711

REACTIONS (5)
  - Diabetes mellitus inadequate control [Not Recovered/Not Resolved]
  - Muscle spasms [Unknown]
  - Rash [Unknown]
  - Dry skin [Unknown]
  - Blood glucose fluctuation [Not Recovered/Not Resolved]
